FAERS Safety Report 8013656-1 (Version None)
Quarter: 2011Q4

REPORT INFORMATION
  Report Type: 
  Country: None (occurrence: None)
  Receive Date: 20111227
  Receipt Date: 20111227
  Transmission Date: 20120403
  Serious: Yes (Other)
  Sender: FDA-Public Use
  Company Number: None

PATIENT
  Age: 87 Year
  Sex: Male
  Weight: 82 kg

DRUGS (6)
  1. , THYROID PILL [Concomitant]
  2. AVEENO SKIN RELIEF BODY WASH FRAGRANCE FR [Suspect]
     Indication: REMOVAL OF INERT MATTER FROM SKIN OR SUBCUTANEOUS TISSUE
     Dosage: , ONCE, TOPICALLY
     Route: 061
     Dates: start: 20111001, end: 20111001
  3. HEART PILL [Concomitant]
  4. , WATER PILL [Concomitant]
  5. ASPIRIN [Concomitant]
  6. COREG [Concomitant]

REACTIONS (2)
  - REACTION TO DRUG EXCIPIENTS [None]
  - DYSPNOEA [None]
